FAERS Safety Report 10383772 (Version 1)
Quarter: 2014Q1

REPORT INFORMATION
  Report Type: Spontaneous
  Country: US (occurrence: None)
  Receive Date: 20140306
  Receipt Date: 20140306
  Transmission Date: 20141002
  Serious: Yes (Other)
  Sender: FDA-Public Use
  Company Number: 163-21880-13071892

PATIENT
  Age: 70 Year
  Sex: Female
  Weight: 61.24 kg

DRUGS (11)
  1. REVLIMID (LENALIDOMIDE) (10 MILLIGRAM, CAPSULES) [Suspect]
     Indication: PLASMA CELL MYELOMA
     Route: 048
     Dates: start: 20120523
  2. METOPROLOL TARTRATE [Concomitant]
  3. SIMVASTATIN [Concomitant]
  4. RANITIDINE HCL [Concomitant]
  5. ACIDOPHILUS (LACTOBACILLUS ACIDOPHILUS) [Concomitant]
  6. IMODIUM ADVANCED [Concomitant]
  7. LEVOXYL (LEVOTHYROXINE SODIUM) [Concomitant]
  8. BABY ASPIRIN (ACETYLSALICYLIC ACID) [Concomitant]
  9. CITRACAL+D (CALCIUM CITRATE W/COLECALCIFEROL) [Concomitant]
  10. VALACYCLOVIR (VALACICLOVIR HYDROCHLORIDE) [Concomitant]
  11. VITAMIN B COMPLEX (B-KOMPLEX ^LECIVA^) [Concomitant]

REACTIONS (2)
  - Diarrhoea [None]
  - Incorrect dose administered [None]
